FAERS Safety Report 9980596 (Version 1)
Quarter: 2014Q1

REPORT INFORMATION
  Report Type: Spontaneous
  Country: US (occurrence: US)
  Receive Date: 20140307
  Receipt Date: 20140307
  Transmission Date: 20141002
  Serious: No
  Sender: FDA-Public Use
  Company Number: US-BIOGENIDEC-2014BI020589

PATIENT
  Sex: Female

DRUGS (18)
  1. AVONEX [Suspect]
     Indication: MULTIPLE SCLEROSIS
     Route: 030
     Dates: start: 20130212
  2. ASPIRIN [Concomitant]
  3. BONIVA [Concomitant]
  4. CALCIUM [Concomitant]
  5. CALCIUM 500 + D [Concomitant]
  6. COREG [Concomitant]
  7. GABAPENTIN [Concomitant]
  8. ISOSORBIDE MONOTITRATE [Concomitant]
  9. LISINOPRIL [Concomitant]
  10. NEURONTIN [Concomitant]
  11. PAMELOR [Concomitant]
  12. PLAVIX [Concomitant]
  13. RESTASIS [Concomitant]
  14. SPRIVIA [Concomitant]
  15. TOPAMAX [Concomitant]
  16. VITAMIN B 12 [Concomitant]
  17. ZANAFLEX [Concomitant]
  18. ZANTAC 75 [Concomitant]

REACTIONS (3)
  - Nasopharyngitis [Unknown]
  - Sinus disorder [Unknown]
  - Chills [Unknown]
